FAERS Safety Report 23678194 (Version 1)
Quarter: 2024Q1

REPORT INFORMATION
  Report Type: Spontaneous
  Country: US (occurrence: US)
  Receive Date: 20240327
  Receipt Date: 20240327
  Transmission Date: 20240410
  Serious: Yes (Hospitalization, Other)
  Sender: FDA-Public Use
  Company Number: US-BEH-2024170105

PATIENT
  Age: 47 Year
  Sex: Female

DRUGS (9)
  1. HUMATE-P [Suspect]
     Active Substance: HUMAN COAGULATION FACTOR VIII/VON WILLEBRAND FACTOR COMPLEX
     Indication: Von Willebrand^s disease
     Dosage: 2600 INTERNATIONAL UNIT, PRN
     Route: 042
     Dates: start: 202312
  2. HUMATE-P [Suspect]
     Active Substance: HUMAN COAGULATION FACTOR VIII/VON WILLEBRAND FACTOR COMPLEX
     Indication: Fall
     Dosage: 1 DOSAGE FORM
     Route: 065
     Dates: start: 20240313
  3. DDAVP [Concomitant]
     Active Substance: DESMOPRESSIN ACETATE
  4. DEXAMETHASONE [Concomitant]
     Active Substance: DEXAMETHASONE
  5. AMICAR [Concomitant]
     Active Substance: AMINOCAPROIC ACID
  6. LASIX [Concomitant]
     Active Substance: FUROSEMIDE
  7. ADVAIR HFA [Concomitant]
     Active Substance: FLUTICASONE PROPIONATE\SALMETEROL XINAFOATE
  8. LAMICTAL [Concomitant]
     Active Substance: LAMOTRIGINE
  9. EPINEPHRINE [Concomitant]
     Active Substance: EPINEPHRINE

REACTIONS (8)
  - Fall [Unknown]
  - Concussion [Unknown]
  - Oedema [Unknown]
  - Oedema [Unknown]
  - Oedema [Unknown]
  - Pneumonia [Unknown]
  - Sepsis [Unknown]
  - Haemorrhage [Unknown]

NARRATIVE: CASE EVENT DATE: 20240201
